FAERS Safety Report 9294324 (Version 2)
Quarter: 2013Q2

REPORT INFORMATION
  Report Type: Report from Study
  Country: US (occurrence: US)
  Receive Date: 20130516
  Receipt Date: 20130524
  Transmission Date: 20140414
  Serious: Yes (Hospitalization)
  Sender: FDA-Public Use
  Company Number: US-US-EMD SERONO, INC.-7210958

PATIENT
  Age: 54 Year
  Sex: Male
  Weight: 102 kg

DRUGS (2)
  1. REBIF [Suspect]
     Indication: MULTIPLE SCLEROSIS
     Route: 058
     Dates: start: 20130304
  2. METFORMIN [Concomitant]
     Indication: DIABETES MELLITUS

REACTIONS (6)
  - Intracranial aneurysm [Not Recovered/Not Resolved]
  - Transient ischaemic attack [Recovered/Resolved]
  - Hypertension [Recovering/Resolving]
  - Blood cholesterol increased [Unknown]
  - Insomnia [Not Recovered/Not Resolved]
  - Pruritus [Recovered/Resolved]
